FAERS Safety Report 22327266 (Version 1)
Quarter: 2023Q2

REPORT INFORMATION
  Report Type: Spontaneous
  Country: US (occurrence: US)
  Receive Date: 20230516
  Receipt Date: 20230516
  Transmission Date: 20230721
  Serious: No
  Sender: FDA-Public Use
  Company Number: US-RADIUS HEALTH INC.-2022US005212

PATIENT
  Sex: Male

DRUGS (1)
  1. TYMLOS [Suspect]
     Active Substance: ABALOPARATIDE
     Indication: Illness
     Dosage: 80 MICROGRAM, QD
     Route: 058
     Dates: start: 20221016

REACTIONS (7)
  - Chest discomfort [Unknown]
  - Depression [Unknown]
  - Anxiety [Unknown]
  - Crying [Unknown]
  - Headache [Unknown]
  - Bone pain [Unknown]
  - Product use issue [Not Recovered/Not Resolved]
